FAERS Safety Report 15480429 (Version 1)
Quarter: 2018Q4

REPORT INFORMATION
  Report Type: Spontaneous
  Country: US (occurrence: US)
  Receive Date: 20181009
  Receipt Date: 20181009
  Transmission Date: 20190205
  Serious: Yes (Hospitalization, Other)
  Sender: FDA-Public Use
  Company Number: US-ASTRAZENECA-2018SF29184

PATIENT
  Age: 82 Year
  Sex: Male

DRUGS (18)
  1. ASPIRIN. [Suspect]
     Active Substance: ASPIRIN
     Indication: PRODUCT USED FOR UNKNOWN INDICATION
     Route: 048
  2. HYDROCODONE [Suspect]
     Active Substance: HYDROCODONE
     Route: 065
  3. LANTUS [Concomitant]
     Active Substance: INSULIN GLARGINE
  4. BRILINTA [Suspect]
     Active Substance: TICAGRELOR
     Indication: PRODUCT USED FOR UNKNOWN INDICATION
     Route: 048
  5. MORPHINE SULFATE. [Suspect]
     Active Substance: MORPHINE SULFATE
     Route: 065
  6. CILOSTAZOL. [Concomitant]
     Active Substance: CILOSTAZOL
  7. CYCLOBENZAPRINE. [Concomitant]
     Active Substance: CYCLOBENZAPRINE
  8. CRESTOR [Concomitant]
     Active Substance: ROSUVASTATIN CALCIUM
  9. XTANDI [Suspect]
     Active Substance: ENZALUTAMIDE
     Indication: PROSTATE CANCER
     Route: 048
     Dates: start: 20180115, end: 20180630
  10. GLIMEPIRIDE. [Concomitant]
     Active Substance: GLIMEPIRIDE
  11. HUMALOG [Concomitant]
     Active Substance: INSULIN LISPRO
  12. TAMSULOSIN [Concomitant]
     Active Substance: TAMSULOSIN
  13. LEVOCETIRIZINE [Concomitant]
     Active Substance: LEVOCETIRIZINE
  14. LUPRON [Concomitant]
     Active Substance: LEUPROLIDE ACETATE
  15. TRILIPIX [Concomitant]
     Active Substance: FENOFIBRIC ACID
  16. METOPROLOL TARTRATE. [Suspect]
     Active Substance: METOPROLOL TARTRATE
     Dosage: 25.0MG UNKNOWN
     Route: 048
  17. JANUVIA [Concomitant]
     Active Substance: SITAGLIPTIN PHOSPHATE
  18. QUINAPRIL. [Concomitant]
     Active Substance: QUINAPRIL

REACTIONS (10)
  - Metastases to bone [Unknown]
  - Fatigue [Unknown]
  - Malaise [Unknown]
  - Nausea [Unknown]
  - Prostatic specific antigen increased [Unknown]
  - Rectal haemorrhage [Unknown]
  - Bone cancer [Unknown]
  - Haemoglobin decreased [Unknown]
  - Constipation [Unknown]
  - Asthenia [Unknown]
